FAERS Safety Report 8999121 (Version 2)
Quarter: 2013Q1

REPORT INFORMATION
  Report Type: Spontaneous
  Country: US (occurrence: US)
  Receive Date: 20130103
  Receipt Date: 20130306
  Transmission Date: 20140127
  Serious: No
  Sender: FDA-Public Use
  Company Number: US-ELI_LILLY_AND_COMPANY-US201212007921

PATIENT
  Sex: Female

DRUGS (4)
  1. HUMALOG 25% LISPRO, 75% NPL [Suspect]
     Indication: DIABETES MELLITUS
     Dosage: 28 U, EACH MORNING
  2. HUMALOG 25% LISPRO, 75% NPL [Suspect]
     Dosage: 24 U, EACH EVENING
  3. HUMULIN REGULAR [Suspect]
     Indication: DIABETES MELLITUS
     Dosage: UNK, PRN
  4. HUMALOG LISPRO [Suspect]
     Indication: DIABETES MELLITUS

REACTIONS (2)
  - Abscess [Recovered/Resolved]
  - Drug dispensing error [Recovered/Resolved]
